FAERS Safety Report 6017514-3 (Version None)
Quarter: 2008Q4

REPORT INFORMATION
  Report Type: 
  Country: None (occurrence: None)
  Receive Date: 20081223
  Receipt Date: 20081215
  Transmission Date: 20090506
  Serious: Yes (Disabling)
  Sender: FDA-Public Use
  Company Number: MX-ASTRAZENECA-2008UW08499

PATIENT
  Age: 39 Year
  Sex: Male

DRUGS (2)
  1. CRESTOR [Suspect]
     Route: 048
  2. ANTICOAGULANT [Concomitant]

REACTIONS (3)
  - ANXIETY [None]
  - MYALGIA [None]
  - WEIGHT DECREASED [None]
